FAERS Safety Report 15801800 (Version 4)
Quarter: 2020Q1

REPORT INFORMATION
  Report Type: Report from Study
  Country: US (occurrence: US)
  Receive Date: 20190109
  Receipt Date: 20200227
  Transmission Date: 20200409
  Serious: No
  Sender: FDA-Public Use
  Company Number: US-ALEXION PHARMACEUTICALS INC.-A201900119

PATIENT
  Sex: Male

DRUGS (1)
  1. SOLIRIS [Suspect]
     Active Substance: ECULIZUMAB
     Indication: MYASTHENIA GRAVIS
     Dosage: UNK
     Route: 065

REACTIONS (9)
  - Fall [Unknown]
  - White blood cell count increased [Unknown]
  - Neck pain [Not Recovered/Not Resolved]
  - Dizziness [Recovered/Resolved]
  - Red blood cell count decreased [Unknown]
  - Back injury [Unknown]
  - Muscular weakness [Not Recovered/Not Resolved]
  - Oedema [Recovered/Resolved]
  - Mean cell volume decreased [Unknown]

NARRATIVE: CASE EVENT DATE: 201901
